FAERS Safety Report 7034232-3 (Version None)
Quarter: 2010Q4

REPORT INFORMATION
  Report Type: 
  Country: None (occurrence: None)
  Receive Date: 20101008
  Receipt Date: 20100930
  Transmission Date: 20110411
  Serious: Yes (Hospitalization)
  Sender: FDA-Public Use
  Company Number: US-BIOGENIDEC-2010BI032812

PATIENT
  Age: 56 Year
  Sex: Male

DRUGS (1)
  1. AVONEX [Suspect]
     Indication: MULTIPLE SCLEROSIS
     Route: 030
     Dates: start: 19980101

REACTIONS (11)
  - ARTHRITIS [None]
  - ARTHROPATHY [None]
  - COGNITIVE DISORDER [None]
  - CONTUSION [None]
  - FALL [None]
  - HYPERSOMNIA [None]
  - HYPOAESTHESIA [None]
  - MEDICAL DEVICE IMPLANTATION [None]
  - MUSCULAR WEAKNESS [None]
  - OPTIC NEURITIS [None]
  - SKELETAL INJURY [None]
